FAERS Safety Report 15258755 (Version 1)
Quarter: 2018Q3

REPORT INFORMATION
  Report Type: Spontaneous
  Country: GB (occurrence: GB)
  Receive Date: 20180809
  Receipt Date: 20180809
  Transmission Date: 20181010
  Serious: Yes (Other)
  Sender: FDA-Public Use
  Company Number: GB-FRESENIUS KABI-FK201808531

PATIENT
  Sex: Male

DRUGS (1)
  1. LACTULOSE 3.3G/5ML ORAL SOLUTION [Suspect]
     Active Substance: LACTULOSE
     Indication: CONSTIPATION
     Route: 048
     Dates: start: 20180719, end: 20180730

REACTIONS (1)
  - Constipation [Recovered/Resolved]
